FAERS Safety Report 10033622 (Version 1)
Quarter: 2014Q1

REPORT INFORMATION
  Report Type: Other
  Country: DE (occurrence: DE)
  Receive Date: 20140325
  Receipt Date: 20140325
  Transmission Date: 20141002
  Serious: Yes (Hospitalization, Congenital Anomaly, Other)
  Sender: FDA-Public Use
  Company Number: DE-LUPIN PHARMACEUTICALS INC.-E2B_00001834

PATIENT
  Sex: Male
  Weight: 3.83 kg

DRUGS (2)
  1. LAMOTRIGIN [Suspect]
     Indication: EPILEPSY
     Route: 064
     Dates: start: 20111010, end: 20120721
  2. FOLSAURE [Concomitant]
     Indication: MATERNAL THERAPY TO ENHANCE FOETAL LUNG MATURITY
     Route: 064

REACTIONS (5)
  - Liver disorder [Recovered/Resolved]
  - Feeding disorder neonatal [Recovered/Resolved]
  - Hydrocele [Unknown]
  - Foetal exposure during pregnancy [Unknown]
  - Exposure during breast feeding [Unknown]
